FAERS Safety Report 9729423 (Version 2)
Quarter: 2015Q3

REPORT INFORMATION
  Report Type: Spontaneous
  Country: US (occurrence: US)
  Receive Date: 20131204
  Receipt Date: 20150804
  Transmission Date: 20151125
  Serious: No
  Sender: FDA-Public Use
  Company Number: US-GILEAD-2009-0021226

PATIENT
  Age: 85 Year
  Sex: Female
  Weight: 72.12 kg

DRUGS (11)
  1. LETAIRIS [Suspect]
     Active Substance: AMBRISENTAN
     Indication: PULMONARY ARTERIAL HYPERTENSION
     Route: 048
     Dates: start: 20090306, end: 20090318
  2. AMARYL [Concomitant]
     Active Substance: GLIMEPIRIDE
  3. TOPROL XL [Concomitant]
     Active Substance: METOPROLOL SUCCINATE
  4. HYDROCHLOROTHIAZIDE/OLMESARTAN MEDOXOMIL [Concomitant]
  5. PRAVACHOL [Concomitant]
     Active Substance: PRAVASTATIN SODIUM
  6. ASA [Concomitant]
     Active Substance: ASPIRIN
  7. K-DUR [Concomitant]
     Active Substance: POTASSIUM CHLORIDE
  8. AMITRIPTYLIN [Concomitant]
     Active Substance: AMITRIPTYLINE
  9. JANUVIA [Concomitant]
     Active Substance: SITAGLIPTIN PHOSPHATE
  10. COUMADIN [Concomitant]
     Active Substance: WARFARIN SODIUM
  11. LYRICA [Concomitant]
     Active Substance: PREGABALIN

REACTIONS (2)
  - Pain [Recovering/Resolving]
  - Malaise [Recovering/Resolving]

NARRATIVE: CASE EVENT DATE: 20090306
